FAERS Safety Report 17565461 (Version 1)
Quarter: 2020Q1

REPORT INFORMATION
  Report Type: Spontaneous
  Country: US (occurrence: US)
  Receive Date: 20200320
  Receipt Date: 20200320
  Transmission Date: 20200409
  Serious: Yes (Hospitalization)
  Sender: FDA-Public Use
  Company Number: US-VERTEX PHARMACEUTICALS-2019-011583

PATIENT
  Age: 32 Year
  Sex: Male

DRUGS (1)
  1. SYMDEKO [Suspect]
     Active Substance: IVACAFTOR\TEZACAFTOR
     Indication: CYSTIC FIBROSIS
     Dosage: TEZACAFTOR 100MG/IVACAFTOR 150MG; IVACAFTOR 150MG, UNKNOWN FREQUENCY
     Route: 048
     Dates: start: 20180625, end: 201912

REACTIONS (1)
  - Cystic fibrosis respiratory infection suppression [Recovering/Resolving]

NARRATIVE: CASE EVENT DATE: 201911
